FAERS Safety Report 10729259 (Version 2)
Quarter: 2015Q1

REPORT INFORMATION
  Report Type: Not Available
  Country: DE (occurrence: DE)
  Receive Date: 20150122
  Receipt Date: 20150312
  Transmission Date: 20150721
  Serious: Yes (Other)
  Sender: FDA-Public Use
  Company Number: DE-CELGENE-062-21880-14080602

PATIENT

DRUGS (6)
  1. CYTARABINE. [Concomitant]
     Active Substance: CYTARABINE
     Indication: B-CELL LYMPHOMA
     Route: 065
  2. RITUXIMAB [Concomitant]
     Active Substance: RITUXIMAB
     Indication: B-CELL LYMPHOMA
     Route: 065
  3. DEXAMETHASONE. [Concomitant]
     Active Substance: DEXAMETHASONE
     Indication: B-CELL LYMPHOMA
     Route: 065
  4. HEPARIN [Concomitant]
     Active Substance: HEPARIN SODIUM
     Indication: THROMBOSIS PROPHYLAXIS
     Route: 041
  5. REVLIMID [Suspect]
     Active Substance: LENALIDOMIDE
     Indication: B-CELL LYMPHOMA
     Route: 048
  6. CISPLATIN. [Concomitant]
     Active Substance: CISPLATIN
     Indication: B-CELL LYMPHOMA
     Route: 065

REACTIONS (13)
  - Ileus paralytic [Unknown]
  - Pulmonary embolism [Unknown]
  - Vomiting [Unknown]
  - Hypersensitivity [Unknown]
  - Renal failure [Unknown]
  - Nausea [Unknown]
  - Neuropathy peripheral [Unknown]
  - Adverse event [Unknown]
  - Cytopenia [Unknown]
  - Skin reaction [Unknown]
  - Non-Hodgkin^s lymphoma [Unknown]
  - Infection [Unknown]
  - Thrombocytopenia [Unknown]
